FAERS Safety Report 4350684-1 (Version None)
Quarter: 2004Q2

REPORT INFORMATION
  Report Type: 
  Country: None (occurrence: None)
  Receive Date: 20040428
  Receipt Date: 20040416
  Transmission Date: 20050107
  Serious: Yes (Hospitalization, Other)
  Sender: FDA-Public Use
  Company Number: HQWYE525020APR04

PATIENT
  Age: 85 Year
  Sex: Female

DRUGS (2)
  1. ETODOLAC [Suspect]
     Indication: LOCALISED OSTEOARTHRITIS
     Dosage: 400 MG PER DAY
     Route: 048
  2. INDOMETHACIN [Concomitant]

REACTIONS (7)
  - ANOREXIA [None]
  - DISSEMINATED INTRAVASCULAR COAGULATION [None]
  - ENTERITIS [None]
  - LARGE INTESTINE PERFORATION [None]
  - PERITONEAL ABSCESS [None]
  - PERITONITIS [None]
  - POST PROCEDURAL COMPLICATION [None]
